FAERS Safety Report 8521567-8 (Version None)
Quarter: 2012Q3

REPORT INFORMATION
  Report Type: 
  Country: None (occurrence: None)
  Receive Date: 20120719
  Receipt Date: 20120713
  Transmission Date: 20120928
  Serious: Yes (Hospitalization)
  Sender: FDA-Public Use
  Company Number: PHHO2012DE010564

PATIENT
  Sex: Female
  Weight: 73.9 kg

DRUGS (1)
  1. TASIGNA [Suspect]
     Indication: ACUTE LYMPHOCYTIC LEUKAEMIA
     Dosage: 300/400 MG
     Route: 048
     Dates: start: 20120531

REACTIONS (2)
  - PNEUMONITIS [None]
  - BRONCHOPNEUMONIA [None]
